FAERS Safety Report 6771746-5 (Version None)
Quarter: 2010Q2

REPORT INFORMATION
  Report Type: 
  Country: None (occurrence: None)
  Receive Date: 20100616
  Receipt Date: 20100416
  Transmission Date: 20101027
  Serious: No
  Sender: FDA-Public Use
  Company Number: US-ASTRAZENECA-2009SE33988

PATIENT
  Age: 51 Year
  Sex: Female

DRUGS (5)
  1. ATACAND [Suspect]
     Indication: HYPERTENSION
     Route: 048
  2. ATACAND [Suspect]
     Route: 048
     Dates: start: 20090101, end: 20091130
  3. TOPROL-XL [Concomitant]
  4. HCTZ [Concomitant]
  5. KLOR-CON [Concomitant]

REACTIONS (3)
  - LOSS OF CONSCIOUSNESS [None]
  - SYNCOPE [None]
  - WEIGHT DECREASED [None]
